FAERS Safety Report 8116182-4 (Version None)
Quarter: 2012Q1

REPORT INFORMATION
  Report Type: 
  Country: None (occurrence: None)
  Receive Date: 20120206
  Receipt Date: 20111220
  Transmission Date: 20120608
  Serious: Yes (Hospitalization)
  Sender: FDA-Public Use
  Company Number: FR-MERCK-1101FRA00151

PATIENT
  Age: 56 Year
  Sex: Male

DRUGS (16)
  1. ONDANSETRON [Suspect]
     Route: 042
     Dates: start: 20090817, end: 20090820
  2. ONDANSETRON [Suspect]
     Route: 042
     Dates: start: 20090907
  3. EMEND [Suspect]
     Indication: PROPHYLAXIS OF NAUSEA AND VOMITING
     Route: 048
     Dates: start: 20090817, end: 20090817
  4. EMEND [Suspect]
     Route: 048
     Dates: start: 20090907
  5. METOCLOPRAMIDE HCL [Suspect]
     Route: 042
     Dates: start: 20090817, end: 20090822
  6. DOXORUBICIN HYDROCHLORIDE [Suspect]
     Indication: TERATOMA
     Route: 042
     Dates: start: 20090817, end: 20090818
  7. MESNA [Suspect]
     Route: 042
     Dates: start: 20090817, end: 20090820
  8. EMEND [Suspect]
     Route: 048
     Dates: start: 20090818, end: 20090819
  9. IFOSFAMIDE [Suspect]
     Indication: TERATOMA
     Route: 042
     Dates: start: 20090817, end: 20090819
  10. METHYLPREDNISOLONE SODIUM SUCCINATE [Suspect]
     Route: 042
     Dates: start: 20090907
  11. MESNA [Suspect]
     Route: 042
     Dates: start: 20090907
  12. TINZAPARIN SODIUM [Concomitant]
     Route: 065
  13. IFOSFAMIDE [Suspect]
     Route: 042
     Dates: start: 20090907
  14. DOXORUBICIN HCL [Suspect]
     Route: 042
     Dates: start: 20090907
  15. METHYLPREDNISOLONE SODIUM SUCCINATE [Suspect]
     Route: 042
     Dates: start: 20090817, end: 20090820
  16. METOCLOPRAMIDE HCL [Suspect]
     Route: 042
     Dates: start: 20090907

REACTIONS (2)
  - ENCEPHALOPATHY [None]
  - DRUG INTERACTION [None]
